FAERS Safety Report 9521546 (Version 1)
Quarter: 2013Q1

REPORT INFORMATION
  Report Type: Spontaneous
  Country: US (occurrence: None)
  Receive Date: 20130305
  Receipt Date: 20130305
  Transmission Date: 20140127
  Serious: Yes (Other)
  Sender: FDA-Public Use
  Company Number: 163-21880-12080021

PATIENT
  Age: 51 Year
  Sex: Male
  Weight: 122.02 kg

DRUGS (8)
  1. REVLIMID [Suspect]
     Indication: PLASMA CELL MYELOMA
     Route: 048
     Dates: start: 20120330, end: 201207
  2. ZOMETA (ZOLEDRONIC ACID) [Concomitant]
  3. ASPIRIN (ACETYLSALICYLIC ACID) [Concomitant]
  4. MOTRIN (IBUPROFEN) [Concomitant]
  5. PERCOCET (OXYCOCET) [Concomitant]
  6. DECADRON (DEXAMETHASONE) [Concomitant]
  7. COMPAZINE (PROCHLORPERAZINE EDISYLATE) [Concomitant]
  8. LISINOPRIL (LISINOPRIL) [Concomitant]

REACTIONS (1)
  - Rash maculo-papular [None]
